FAERS Safety Report 5591792-7 (Version None)
Quarter: 2008Q1

REPORT INFORMATION
  Report Type: 
  Country: None (occurrence: None)
  Receive Date: 20080115
  Receipt Date: 20080103
  Transmission Date: 20080703
  Serious: Yes (Other)
  Sender: FDA-Public Use
  Company Number: B0360857A

PATIENT
  Sex: Female

DRUGS (3)
  1. PAROXETINE HYDROCHLORIDE [Suspect]
     Route: 065
     Dates: start: 19990705, end: 20040601
  2. PROZAC [Concomitant]
     Dates: start: 19960626
  3. DOTHIEPIN HYDROCHLORIDE [Concomitant]
     Dates: start: 19921028

REACTIONS (19)
  - AGGRESSION [None]
  - AGITATION [None]
  - AGORAPHOBIA [None]
  - ANOREXIA [None]
  - ANXIETY [None]
  - BALANCE DISORDER [None]
  - DEREALISATION [None]
  - DISSOCIATION [None]
  - DISTURBANCE IN ATTENTION [None]
  - DRUG WITHDRAWAL SYNDROME [None]
  - DRY MOUTH [None]
  - HEADACHE [None]
  - INSOMNIA [None]
  - MOOD SWINGS [None]
  - MUSCLE TWITCHING [None]
  - NAUSEA [None]
  - NIGHTMARE [None]
  - PANIC ATTACK [None]
  - SUICIDAL IDEATION [None]
